FAERS Safety Report 10442601 (Version 5)
Quarter: 2015Q4

REPORT INFORMATION
  Report Type: Spontaneous
  Country: US (occurrence: US)
  Receive Date: 20140909
  Receipt Date: 20151104
  Transmission Date: 20160304
  Serious: Yes (Hospitalization, Disabling, Other)
  Sender: FDA-Public Use
  Company Number: US-009507513-1409USA003474

PATIENT
  Sex: Female

DRUGS (4)
  1. FOSAMAX [Suspect]
     Active Substance: ALENDRONATE SODIUM
     Indication: OSTEOPOROSIS
     Dosage: 70 MG, UNK
     Route: 048
     Dates: start: 2002, end: 2010
  2. BONIVA [Suspect]
     Active Substance: IBANDRONATE SODIUM
     Indication: OSTEOPOROSIS
     Dosage: 100 MG, UNK
     Route: 048
     Dates: start: 2010, end: 2012
  3. VITAMIN D [Concomitant]
     Active Substance: CHOLECALCIFEROL
     Indication: ROUTINE HEALTH MAINTENANCE
     Dosage: 1000 MG, UNKNOWN
     Route: 065
     Dates: start: 1994
  4. CALCIUM (UNSPECIFIED) [Concomitant]
     Active Substance: CALCIUM
     Indication: ROUTINE HEALTH MAINTENANCE
     Dosage: UNK, UNKNOWN
     Route: 065
     Dates: start: 1994

REACTIONS (15)
  - Atrophic vulvovaginitis [Unknown]
  - Depression [Unknown]
  - Osteoarthritis [Unknown]
  - Blood pressure decreased [Recovered/Resolved]
  - Poor quality sleep [Not Recovered/Not Resolved]
  - Deep vein thrombosis [Recovered/Resolved]
  - Femur fracture [Unknown]
  - Hypoaesthesia [Unknown]
  - Foot fracture [Unknown]
  - Vitamin D deficiency [Unknown]
  - Pain in extremity [Unknown]
  - Blood cholesterol increased [Unknown]
  - Femur fracture [Recovered/Resolved]
  - Hypertension [Unknown]
  - Anxiety [Not Recovered/Not Resolved]

NARRATIVE: CASE EVENT DATE: 2002
